FAERS Safety Report 8346096-6 (Version None)
Quarter: 2012Q2

REPORT INFORMATION
  Report Type: 
  Country: None (occurrence: None)
  Receive Date: 20120504
  Receipt Date: 20120427
  Transmission Date: 20120825
  Serious: Yes (Other)
  Sender: FDA-Public Use
  Company Number: WAES 1003USA00780

PATIENT
  Age: 65 Year
  Sex: Female

DRUGS (11)
  1. WARFARIN SODIUM [Concomitant]
  2. HYDROXYUREA [Concomitant]
  3. RAMIPRIL [Concomitant]
  4. ASPIRIN [Concomitant]
  5. BISOPROLOL FUMARATE [Concomitant]
  6. ISOSORBIDE MONONIATRATE [Concomitant]
  7. VYTORIN [Suspect]
     Indication: ACUTE CORONARY SYNDROME
     Dosage: 10-40 MG, DAILY, PO
     Route: 048
     Dates: start: 20090701, end: 20110801
  8. LASOPRAZOLE [Concomitant]
  9. QUININE SULFATE [Concomitant]
  10. PLACEBO [Suspect]
     Indication: ACUTE CORONARY SYNDROME
     Dosage: , PO
     Route: 048
     Dates: start: 20090701, end: 20110801
  11. PLACEBO [Suspect]
     Indication: ACUTE CORONARY SYNDROME
     Dosage: PO
     Route: 048
     Dates: start: 20090701, end: 20110801

REACTIONS (3)
  - SQUAMOUS CELL CARCINOMA [None]
  - NEOPLASM RECURRENCE [None]
  - BLOOD LACTATE DEHYDROGENASE INCREASED [None]
